FAERS Safety Report 4726037-0 (Version None)
Quarter: 2005Q3

REPORT INFORMATION
  Report Type: 
  Country: None (occurrence: None)
  Receive Date: 20050725
  Receipt Date: 20050714
  Transmission Date: 20060218
  Serious: Yes (Other)
  Sender: FDA-Public Use
  Company Number: B0387587A

PATIENT
  Age: 35 Year
  Sex: Female

DRUGS (7)
  1. COMBIVIR [Suspect]
     Indication: HIV INFECTION
     Dosage: 1 TABLET/ TWICE PER DAY
  2. EFAVIRENZ [Suspect]
     Indication: HIV INFECTION
  3. RIFAMPICIN [Concomitant]
  4. ISONIAZID [Concomitant]
  5. ETHAMBUTOL HYDROCHLORIDE [Concomitant]
  6. PYRAZINAMIDE [Concomitant]
  7. PYRIDOXINE HCL [Concomitant]

REACTIONS (18)
  - BETA HAEMOLYTIC STREPTOCOCCAL INFECTION [None]
  - CERVICAL DYSPLASIA [None]
  - DRUG EFFECT DECREASED [None]
  - DRUG ERUPTION [None]
  - DYSURIA [None]
  - GRANULOMA INGUINALE [None]
  - HERPES SIMPLEX [None]
  - IMMUNE RECONSTITUTION SYNDROME [None]
  - PEMPHIGOID [None]
  - PEMPHIGUS [None]
  - SKIN ULCER [None]
  - SMEAR CERVIX ABNORMAL [None]
  - URETHRAL ULCER [None]
  - VAGINAL DISCHARGE [None]
  - VAGINAL ULCERATION [None]
  - VESTIBULITIS [None]
  - VULVAL ULCERATION [None]
  - VULVAR EROSION [None]
